FAERS Safety Report 6880816-2 (Version None)
Quarter: 2010Q3

REPORT INFORMATION
  Report Type: 
  Country: None (occurrence: None)
  Receive Date: 20100728
  Receipt Date: 20100720
  Transmission Date: 20110219
  Serious: Yes (Other)
  Sender: FDA-Public Use
  Company Number: FR-BRISTOL-MYERS SQUIBB COMPANY-15203664

PATIENT
  Age: 73 Year
  Sex: Female

DRUGS (8)
  1. ORENCIA [Suspect]
     Route: 042
     Dates: start: 20091201, end: 20100301
  2. TAHOR [Concomitant]
  3. OROCAL D3 [Concomitant]
  4. ACETAMINOPHEN [Concomitant]
  5. TOPALGIC [Concomitant]
  6. LOXEN [Concomitant]
  7. HUMALOG [Concomitant]
  8. MICARDIS [Concomitant]

REACTIONS (5)
  - HERPES ZOSTER [None]
  - PANCYTOPENIA [None]
  - SEPSIS [None]
  - ULCER [None]
  - VASCULITIS [None]
